FAERS Safety Report 21334728 (Version 1)
Quarter: 2022Q3

REPORT INFORMATION
  Report Type: Other
  Country: US (occurrence: US)
  Receive Date: 20220914
  Receipt Date: 20220914
  Transmission Date: 20221027
  Serious: No
  Sender: FDA-Public Use
  Company Number: US-LEADIANT BIOSCIENCES INC-2022STPI000121

PATIENT
  Sex: Male

DRUGS (1)
  1. MATULANE [Suspect]
     Active Substance: PROCARBAZINE HYDROCHLORIDE
     Indication: Brain neoplasm malignant
     Dosage: 50 MILLIGRAM, 2 CAPSULES FOR 7 DAYS, THEN 3 CAPSULES FOR 7 DAYS, CYCLE DAYS 14 DAYS ON AND 14 DAYS O
     Dates: start: 20211214

REACTIONS (1)
  - Abdominal pain upper [Unknown]
